FAERS Safety Report 7679472-5 (Version None)
Quarter: 2011Q3

REPORT INFORMATION
  Report Type: 
  Country: None (occurrence: None)
  Receive Date: 20110812
  Receipt Date: 20110812
  Transmission Date: 20111222
  Serious: Yes (Life-Threatening)
  Sender: FDA-Public Use
  Company Number: None

PATIENT
  Sex: Female
  Weight: 48.987 kg

DRUGS (1)
  1. WARFARIN SODIUM [Suspect]
     Indication: ATRIAL FIBRILLATION
     Dosage: 5 MGM
     Route: 048
     Dates: start: 20110722, end: 20110810

REACTIONS (2)
  - INTERNATIONAL NORMALISED RATIO INCREASED [None]
  - PRODUCT SUBSTITUTION ISSUE [None]
